FAERS Safety Report 8335948 (Version 4)
Quarter: 2012Q4

REPORT INFORMATION
  Report Type: 
  Country: US (occurrence: US)
  Receive Date: 20120113
  Receipt Date: 20121112
  Transmission Date: 20130627
  Serious: Yes (Other)
  Sender: FDA-Public Use
  Company Number: US-BAYER-2012-003627

PATIENT
  Age: 45 Year
  Sex: Female
  Weight: 74.5 kg

DRUGS (13)
  1. BETASERON [Suspect]
     Indication: MULTIPLE SCLEROSIS
     Dosage: 8 miu, QOD
     Route: 058
     Dates: start: 20090210
  2. VITAMIN C [Concomitant]
     Dosage: 1 DF, QD
  3. VITAMIN E [Concomitant]
     Dosage: 1 DF, QD
  4. COENZYME Q10 [Concomitant]
     Dosage: 1 DF, QD
  5. FLAXSEED OIL [Concomitant]
     Dosage: 1 DF, QD
  6. VITAMIN D [Concomitant]
     Indication: MULTIPLE SCLEROSIS
     Dosage: 1 DF, QD
  7. GLUCOSAMINE/MSM [Concomitant]
     Dosage: 1000 mg, QD
  8. CLARITIN [Concomitant]
  9. BENADRYL [Concomitant]
  10. SUDAFED [PSEUDOEPHEDRINE HYDROCHLORIDE] [Concomitant]
  11. MUCIN [Concomitant]
  12. OLIVE LEAVES EXTRACT [Concomitant]
  13. HERBAL PREPARATION [Concomitant]

REACTIONS (16)
  - Uterine neoplasm [Not Recovered/Not Resolved]
  - Uterine polyp [Not Recovered/Not Resolved]
  - Uterine cyst [Not Recovered/Not Resolved]
  - Ovarian cyst [Not Recovered/Not Resolved]
  - Endometrial hypertrophy [None]
  - Menstruation delayed [Not Recovered/Not Resolved]
  - Menopause [Not Recovered/Not Resolved]
  - Sinusitis [Not Recovered/Not Resolved]
  - Nasal congestion [Not Recovered/Not Resolved]
  - Headache [Not Recovered/Not Resolved]
  - Vertigo [Not Recovered/Not Resolved]
  - Diplopia [Not Recovered/Not Resolved]
  - Malaise [Not Recovered/Not Resolved]
  - Influenza like illness [None]
  - Contusion [None]
  - Dizziness [None]
